FAERS Safety Report 8206029-X (Version None)
Quarter: 2012Q1

REPORT INFORMATION
  Report Type: 
  Country: None (occurrence: None)
  Receive Date: 20120313
  Receipt Date: 20120229
  Transmission Date: 20120608
  Serious: Yes (Hospitalization, Disabling)
  Sender: FDA-Public Use
  Company Number: FR-MYLANLABS-2012S1004439

PATIENT
  Age: 58 Year
  Sex: Male

DRUGS (9)
  1. CISPLATIN [Suspect]
     Indication: LUNG NEOPLASM MALIGNANT
     Route: 042
     Dates: start: 20111219
  2. CISPLATIN [Suspect]
     Dates: start: 20120109
  3. ETOPOSIDE [Suspect]
     Dates: start: 20120109, end: 20120111
  4. CLORAZEPATE DIPOTASSIUM [Concomitant]
     Indication: PREMEDICATION
  5. GRANISETRON [Concomitant]
     Indication: PREMEDICATION
  6. CHLORPROMAZINE HCL [Concomitant]
     Indication: PREMEDICATION
  7. ETOPOSIDE [Suspect]
     Indication: LUNG NEOPLASM MALIGNANT
     Route: 042
     Dates: start: 20111219, end: 20111221
  8. METHYLPREDNISOLONE [Concomitant]
     Indication: PREMEDICATION
  9. NEULASTA [Concomitant]
     Dates: start: 20111222, end: 20120112

REACTIONS (1)
  - PAPILLOEDEMA [None]
